FAERS Safety Report 6491722-X (Version None)
Quarter: 2009Q4

REPORT INFORMATION
  Report Type: 
  Country: None (occurrence: None)
  Receive Date: 20091208
  Receipt Date: 20091124
  Transmission Date: 20100525
  Serious: Yes (Other)
  Sender: FDA-Public Use
  Company Number: DSA_42097_2009

PATIENT
  Age: 63 Year
  Sex: Female

DRUGS (6)
  1. ALTIAZEM (ALTIAZEM-DILTIAZEM HCL) (NOT SPECIFIED) [Suspect]
     Indication: HYPERTENSION
     Dosage: (300 MG QD ORAL)
     Route: 048
     Dates: start: 20091004, end: 20091025
  2. ENALAPRIL MALEATE AND HYDROCHLOROTHIAZIDE [Suspect]
     Indication: HYPERTENSION
     Dosage: (20-12.5 MG DAILY ORAL)
     Route: 048
     Dates: start: 20091004, end: 20091025
  3. SIMVASTATIN [Suspect]
     Indication: HYPERCHOLESTEROLAEMIA
     Dosage: (20 MG QD ORAL)
     Route: 048
     Dates: start: 20091004, end: 20091025
  4. PLAVIX [Suspect]
     Indication: ISCHAEMIC CARDIOMYOPATHY
     Dosage: (75 MG QD ORAL)
     Route: 048
     Dates: start: 20091004, end: 20091025
  5. CORLENTOR-IVABRADINE HYDROCHLORIDE [Suspect]
     Indication: ARRHYTHMIA
     Dosage: (5 MG QD ORAL)
     Route: 048
     Dates: start: 20091004, end: 20091025
  6. SERETIDE /01420901/ [Concomitant]

REACTIONS (1)
  - RASH GENERALISED [None]
